FAERS Safety Report 8605006-4 (Version None)
Quarter: 2012Q3

REPORT INFORMATION
  Report Type: 
  Country: None (occurrence: None)
  Receive Date: 20120820
  Receipt Date: 20120816
  Transmission Date: 20120928
  Serious: Yes (Hospitalization, Other)
  Sender: FDA-Public Use
  Company Number: US-PFIZER INC-2012201287

PATIENT
  Age: 78 Year
  Sex: Female
  Weight: 76.6 kg

DRUGS (6)
  1. SPIRONOLACTONE [Concomitant]
     Indication: SWELLING
     Dosage: 25 MG, 1X/DAY
  2. FLECTOR [Suspect]
     Indication: SCOLIOSIS
     Dosage: UNK, 1X/DAY
     Route: 061
     Dates: start: 20100101, end: 20120701
  3. LASIX [Concomitant]
     Dosage: 40 MG, 1X/DAY
  4. PLAVIX [Concomitant]
     Dosage: UNK
  5. POTASSIUM [Concomitant]
     Dosage: 10 MEQ, 1X/DAY
  6. ZOCOR [Concomitant]
     Dosage: UNK, 1X/DAY

REACTIONS (4)
  - DYSSTASIA [None]
  - CLOSTRIDIAL INFECTION [None]
  - PAIN [None]
  - DIVERTICULITIS [None]
